FAERS Safety Report 6805028-X (Version None)
Quarter: 2010Q2

REPORT INFORMATION
  Report Type: 
  Country: None (occurrence: None)
  Receive Date: 20100628
  Receipt Date: 20071003
  Transmission Date: 20101027
  Serious: No
  Sender: FDA-Public Use
  Company Number: US-PFIZER INC-2007065196

PATIENT
  Sex: Female
  Weight: 78.02 kg

DRUGS (9)
  1. XALATAN [Suspect]
     Indication: GLAUCOMA
  2. ALPRAZOLAM [Concomitant]
  3. LISINOPRIL [Concomitant]
  4. GLYBURIDE [Concomitant]
  5. ISOSORBIDE [Concomitant]
  6. ARICEPT [Concomitant]
  7. FAMOTIDINE [Concomitant]
  8. GLIPIZIDE [Concomitant]
  9. MONTELUKAST SODIUM [Concomitant]

REACTIONS (3)
  - BLINDNESS TRANSIENT [None]
  - BLOOD PRESSURE INCREASED [None]
  - EYE IRRITATION [None]
